FAERS Safety Report 10736200 (Version 1)
Quarter: 2015Q1

REPORT INFORMATION
  Report Type: Spontaneous
  Country: US (occurrence: None)
  Receive Date: 20150122
  Receipt Date: 20150122
  Transmission Date: 20150721
  Serious: Yes (Death, Hospitalization)
  Sender: FDA-Public Use
  Company Number: None

PATIENT
  Age: 59 Year
  Sex: Male
  Weight: 85.46 kg

DRUGS (5)
  1. ETOPOSIDE (VP-16) [Suspect]
     Active Substance: ETOPOSIDE
     Dates: start: 20150104
  2. RITUXIMAB (MOAB C2B8 ANTI CD20, CHIMERIC) [Suspect]
     Active Substance: RITUXIMAB
     Dates: start: 20150101
  3. DOXORUBICIN HYDROCHLORIDE. [Suspect]
     Active Substance: DOXORUBICIN HYDROCHLORIDE
     Dates: start: 20150104
  4. VINCRISTINE SULFATE. [Suspect]
     Active Substance: VINCRISTINE SULFATE
     Dates: start: 20150104
  5. CYCLOPHOSPHAMIDE. [Suspect]
     Active Substance: CYCLOPHOSPHAMIDE
     Dates: start: 20150105

REACTIONS (36)
  - Abdominal pain [None]
  - Generalised oedema [None]
  - Hypomagnesaemia [None]
  - Hypercapnia [None]
  - Clostridium difficile colitis [None]
  - Blood albumin decreased [None]
  - Respiratory distress [None]
  - Febrile neutropenia [None]
  - Dyspnoea [None]
  - Sinus tachycardia [None]
  - Blister infected [None]
  - Genital lesion [None]
  - Chromaturia [None]
  - Sepsis [None]
  - Nausea [None]
  - Pain [None]
  - Oedema peripheral [None]
  - Skin exfoliation [None]
  - Oedema [None]
  - Mouth haemorrhage [None]
  - Diarrhoea [None]
  - Skin discolouration [None]
  - Blood lactate dehydrogenase abnormal [None]
  - Ascites [None]
  - Thrombocytopenia [None]
  - Rhonchi [None]
  - Hypocalcaemia [None]
  - Chest pain [None]
  - Respiratory arrest [None]
  - Ocular hyperaemia [None]
  - Haemoglobin abnormal [None]
  - Hypokalaemia [None]
  - Cardiac disorder [None]
  - Loss of consciousness [None]
  - Electrocardiogram QRS complex abnormal [None]
  - Acute kidney injury [None]

NARRATIVE: CASE EVENT DATE: 20150112
